FAERS Safety Report 24638400 (Version 1)
Quarter: 2024Q4

REPORT INFORMATION
  Report Type: Spontaneous
  Country: AU (occurrence: AU)
  Receive Date: 20241119
  Receipt Date: 20241119
  Transmission Date: 20250115
  Serious: Yes (Other)
  Sender: MYLAN
  Company Number: AU-MYLANLABS-2024M1103060

PATIENT
  Age: 43 Year
  Sex: Female

DRUGS (6)
  1. METHOTREXATE [Suspect]
     Active Substance: METHOTREXATE
     Indication: Rheumatoid arthritis
     Dosage: 20 MILLIGRAM, QW
     Route: 065
  2. DEXAMETHASONE [Suspect]
     Active Substance: DEXAMETHASONE
     Indication: Paraneoplastic encephalomyelitis
     Dosage: 8 MILLIGRAM, QD
     Route: 042
  3. PREDNISONE [Suspect]
     Active Substance: PREDNISONE
     Indication: Paraneoplastic encephalomyelitis
     Dosage: 25 MILLIGRAM, QD
     Route: 065
  4. Immunoglobulin [Concomitant]
     Indication: Paraneoplastic encephalomyelitis
     Dosage: UNK
     Route: 042
  5. RITUXIMAB [Concomitant]
     Active Substance: RITUXIMAB
     Indication: Paraneoplastic encephalomyelitis
     Dosage: 375 MILLIGRAM/SQ. METER
     Route: 065
  6. MYCOPHENOLATE MOFETIL [Concomitant]
     Active Substance: MYCOPHENOLATE MOFETIL
     Indication: Paraneoplastic encephalomyelitis
     Dosage: UNK
     Route: 065

REACTIONS (3)
  - Monoclonal B-cell lymphocytosis [Recovered/Resolved]
  - Osteopenia [Recovering/Resolving]
  - Lumbar vertebral fracture [Unknown]
